APPROVED DRUG PRODUCT: POTASSIUM CHLORIDE
Active Ingredient: POTASSIUM CHLORIDE
Strength: 20MEQ/15ML
Dosage Form/Route: SOLUTION;ORAL
Application: A211665 | Product #002 | TE Code: AA
Applicant: STRIDES PHARMA GLOBAL PTE LTD
Approved: Jan 16, 2024 | RLD: No | RS: No | Type: RX